FAERS Safety Report 6673007-1 (Version None)
Quarter: 2010Q2

REPORT INFORMATION
  Report Type: 
  Country: None (occurrence: None)
  Receive Date: 20100408
  Receipt Date: 20100331
  Transmission Date: 20101027
  Serious: Yes (Hospitalization)
  Sender: FDA-Public Use
  Company Number: B0644500A

PATIENT
  Age: 80 Year
  Sex: Female

DRUGS (9)
  1. DEROXAT [Suspect]
     Indication: DRUG USE FOR UNKNOWN INDICATION
     Dosage: 30MG PER DAY
     Route: 048
     Dates: end: 20100224
  2. TAHOR [Suspect]
     Dosage: 40MG PER DAY
     Route: 048
     Dates: end: 20100224
  3. LOXAPAC [Suspect]
     Indication: DEMENTIA
     Dosage: 20DROP PER DAY
     Route: 048
     Dates: start: 20100219, end: 20100224
  4. IXPRIM [Suspect]
     Dosage: 4UNIT PER DAY
     Route: 048
     Dates: end: 20100226
  5. OMEPRAZOLE [Concomitant]
     Route: 065
  6. KARDEGIC [Concomitant]
     Route: 065
  7. LEVOTHYROX [Concomitant]
     Route: 065
  8. COVERSYL [Concomitant]
     Route: 065
  9. METHOTREXATE [Concomitant]
     Dosage: 15MG WEEKLY
     Route: 065
     Dates: start: 20100224

REACTIONS (5)
  - AGGRESSION [None]
  - AGITATION [None]
  - CYTOLYTIC HEPATITIS [None]
  - DELIRIUM [None]
  - DEMENTIA [None]
